FAERS Safety Report 5097272-X (Version None)
Quarter: 2006Q3

REPORT INFORMATION
  Report Type: 
  Country: None (occurrence: None)
  Receive Date: 20060906
  Receipt Date: 20060509
  Transmission Date: 20061208
  Serious: Yes (Death, Hospitalization, Other)
  Sender: FDA-Public Use
  Company Number: PHBS2006JP06866

PATIENT
  Age: 32 Year
  Sex: Female

DRUGS (5)
  1. NEORAL [Suspect]
     Indication: CORD BLOOD TRANSPLANT THERAPY
     Dosage: 3 MG/KG/D
     Route: 065
  2. METHOTREXATE [Suspect]
     Indication: CORD BLOOD TRANSPLANT THERAPY
  3. CYTOSINE ARABINOSIDE [Concomitant]
     Indication: CORD BLOOD TRANSPLANT THERAPY
     Dosage: 8000 MG/M2
  4. CYCLOPHOSPHAMIDE [Concomitant]
     Indication: CORD BLOOD TRANSPLANT THERAPY
     Dosage: 120 MG/KG
  5. IRRADIATION [Concomitant]

REACTIONS (6)
  - ACUTE MYELOID LEUKAEMIA [None]
  - CRYPTOGENIC ORGANISING PNEUMONIA [None]
  - GRAFT VERSUS HOST DISEASE [None]
  - PRECURSOR B-LYMPHOBLASTIC LYMPHOMA [None]
  - STEM CELL TRANSPLANT [None]
  - THROMBOTIC MICROANGIOPATHY [None]
